FAERS Safety Report 9926206 (Version 1)
Quarter: 2014Q1

REPORT INFORMATION
  Report Type: Spontaneous
  Country: FR (occurrence: FR)
  Receive Date: 20140226
  Receipt Date: 20140226
  Transmission Date: 20141002
  Serious: Yes (Hospitalization)
  Sender: FDA-Public Use
  Company Number: FR-ASTRAZENECA-2014SE12128

PATIENT
  Age: 33613 Day
  Sex: Female

DRUGS (8)
  1. INEXIUM [Suspect]
     Route: 048
     Dates: start: 20131115, end: 20131225
  2. KARDEGIC [Concomitant]
  3. CRESTOR [Concomitant]
  4. TARDYFERON [Concomitant]
  5. IMOVANE [Concomitant]
  6. UVEDOSE [Concomitant]
  7. LEVOTHYROX [Concomitant]
  8. DUROGESIC [Concomitant]

REACTIONS (2)
  - Hypoproteinaemia [Not Recovered/Not Resolved]
  - Hyponatraemia [Recovered/Resolved]
